FAERS Safety Report 20006522 (Version 1)
Quarter: 2021Q4

REPORT INFORMATION
  Report Type: Spontaneous
  Country: US (occurrence: US)
  Receive Date: 20211028
  Receipt Date: 20211028
  Transmission Date: 20220303
  Serious: Yes (Death)
  Sender: FDA-Public Use
  Company Number: None

PATIENT
  Age: 46 Year
  Sex: Male
  Weight: 124.65 kg

DRUGS (4)
  1. ENVARSUS XR [Suspect]
     Active Substance: TACROLIMUS
     Indication: Kidney transplant rejection
     Route: 048
     Dates: start: 20210326, end: 20210928
  2. MYCOPHENOLIC ACID [Suspect]
     Active Substance: MYCOPHENOLIC ACID
     Indication: Kidney transplant rejection
     Route: 048
     Dates: start: 20210326, end: 20210928
  3. MYCOPHENOLIC ACID [Concomitant]
     Active Substance: MYCOPHENOLIC ACID
     Dates: start: 20210326, end: 20210928
  4. ENVARSUS XR [Concomitant]
     Active Substance: TACROLIMUS
     Dates: start: 20210326, end: 20210928

REACTIONS (1)
  - Death [None]

NARRATIVE: CASE EVENT DATE: 20210928
